FAERS Safety Report 8127843-5 (Version None)
Quarter: 2012Q1

REPORT INFORMATION
  Report Type: 
  Country: None (occurrence: None)
  Receive Date: 20120210
  Receipt Date: 20110729
  Transmission Date: 20120608
  Serious: No
  Sender: FDA-Public Use
  Company Number: US-GLAXOSMITHKLINE-A0939813A

PATIENT
  Sex: Female

DRUGS (1)
  1. PAROXETINE [Suspect]
     Indication: DEPRESSION
     Route: 065

REACTIONS (3)
  - DEPRESSION [None]
  - DRUG INEFFECTIVE [None]
  - ANXIETY DISORDER [None]
